FAERS Safety Report 9096594 (Version 1)
Quarter: 2013Q1

REPORT INFORMATION
  Report Type: Spontaneous
  Country: US (occurrence: None)
  Receive Date: 20130124
  Receipt Date: 20130124
  Transmission Date: 20140127
  Serious: Yes (Hospitalization)
  Sender: FDA-Public Use
  Company Number: USA/USA/13/0027482

PATIENT
  Age: 68 Year
  Sex: Male

DRUGS (2)
  1. TACROLIMUS [Suspect]
     Indication: LUNG TRANSPLANT
  2. CYCLOSPORINE (CICLOSPORIN) [Suspect]

REACTIONS (8)
  - Guillain-Barre syndrome [None]
  - Asthenia [None]
  - Gait disturbance [None]
  - Dyspnoea exertional [None]
  - Neurotoxicity [None]
  - Renal failure acute [None]
  - Rhabdomyolysis [None]
  - Plasmapheresis [None]
